FAERS Safety Report 4578595-7 (Version None)
Quarter: 2005Q1

REPORT INFORMATION
  Report Type: 
  Country: None (occurrence: None)
  Receive Date: 20050211
  Receipt Date: 20050204
  Transmission Date: 20050727
  Serious: Yes (Death)
  Sender: FDA-Public Use
  Company Number: US-JNJFOC-20050201672

PATIENT
  Age: 23 Year
  Sex: Male

DRUGS (1)
  1. DURAGESIC [Suspect]
     Indication: INTENTIONAL MISUSE
     Route: 065
     Dates: start: 20041014, end: 20041014

REACTIONS (3)
  - DRUG ABUSER [None]
  - INJURY ASPHYXIATION [None]
  - SELF-MEDICATION [None]
